FAERS Safety Report 20834617 (Version 2)
Quarter: 2022Q2

REPORT INFORMATION
  Report Type: Report from Study
  Country: PA (occurrence: PA)
  Receive Date: 20220516
  Receipt Date: 20220615
  Transmission Date: 20220721
  Serious: Yes (Other)
  Sender: FDA-Public Use
  Company Number: PA-NOVARTISPH-NVSC2022PA111729

PATIENT
  Age: 64 Year
  Sex: Female

DRUGS (2)
  1. DIOVAN [Suspect]
     Active Substance: VALSARTAN
     Indication: Product used for unknown indication
     Dosage: 320 MG
     Route: 065
     Dates: start: 202205
  2. EXFORGE [Suspect]
     Active Substance: AMLODIPINE BESYLATE\VALSARTAN
     Indication: Product used for unknown indication
     Dosage: 5/320 MG
     Route: 065
     Dates: start: 202112, end: 202205

REACTIONS (4)
  - Asphyxia [Unknown]
  - Aphonia [Unknown]
  - Dysphonia [Unknown]
  - Product supply issue [Unknown]
